FAERS Safety Report 13675908 (Version 1)
Quarter: 2017Q2

REPORT INFORMATION
  Report Type: Spontaneous
  Country: US (occurrence: US)
  Receive Date: 20170620
  Receipt Date: 20170620
  Transmission Date: 20170830
  Serious: Yes (Disabling)
  Sender: FDA-Public Use
  Company Number: None

PATIENT
  Age: 31 Year
  Sex: Male
  Weight: 50.85 kg

DRUGS (3)
  1. MELATONIN [Concomitant]
     Active Substance: MELATONIN
  2. VITAMIN D [Concomitant]
     Active Substance: CHOLECALCIFEROL
  3. CLONAZEPAM. [Suspect]
     Active Substance: CLONAZEPAM
     Indication: PANIC DISORDER
     Dosage: 120 TABLET(S); 5 TIMES A DAY; ORAL?
     Route: 048
     Dates: start: 20130601

REACTIONS (17)
  - Gastric disorder [None]
  - Discomfort [None]
  - Tachyphrenia [None]
  - Nausea [None]
  - Gait disturbance [None]
  - Weight decreased [None]
  - Suicidal ideation [None]
  - Anxiety [None]
  - Dizziness [None]
  - Headache [None]
  - Depersonalisation/derealisation disorder [None]
  - Derealisation [None]
  - Impaired driving ability [None]
  - Neuralgia [None]
  - Irritability [None]
  - Myalgia [None]
  - Agoraphobia [None]

NARRATIVE: CASE EVENT DATE: 20131010
